FAERS Safety Report 19599886 (Version 1)
Quarter: 2021Q3

REPORT INFORMATION
  Report Type: Spontaneous
  Country: JP (occurrence: JP)
  Receive Date: 20210722
  Receipt Date: 20210722
  Transmission Date: 20211014
  Serious: Yes (Other)
  Sender: FDA-Public Use
  Company Number: JP-PFIZER INC-2021864654

PATIENT
  Age: 73 Year
  Sex: Female
  Weight: 72 kg

DRUGS (9)
  1. AMLODIPINE [AMLODIPINE BESILATE] [Concomitant]
     Active Substance: AMLODIPINE BESYLATE
     Dosage: UNK
  2. PRALIA [Concomitant]
     Active Substance: DENOSUMAB
     Dosage: UNK
     Dates: end: 20210125
  3. VFEND [Suspect]
     Active Substance: VORICONAZOLE
     Indication: ASPERGILLOMA
     Dosage: 200 MG, 2X/DAY
     Route: 048
     Dates: start: 20210603, end: 20210606
  4. VFEND [Interacting]
     Active Substance: VORICONAZOLE
     Dosage: 200 MG, 2X/DAY (100 MG (2 TABLETS), 2X A DAY)
  5. BERAPROST NA [Concomitant]
     Active Substance: BERAPROST SODIUM
     Dosage: UNK
  6. ALFACALCIDOL [Concomitant]
     Active Substance: ALFACALCIDOL
     Dosage: UNK
  7. WARFARIN [Concomitant]
     Active Substance: WARFARIN
     Dosage: UNK
  8. MAGNESIUM OXIDE. [Concomitant]
     Active Substance: MAGNESIUM OXIDE
     Dosage: UNK
  9. NEORAL [Interacting]
     Active Substance: CYCLOSPORINE
     Dosage: 150 MG

REACTIONS (2)
  - Liver disorder [Recovered/Resolved]
  - Drug interaction [Unknown]

NARRATIVE: CASE EVENT DATE: 20210607
